FAERS Safety Report 19924220 (Version 4)
Quarter: 2023Q1

REPORT INFORMATION
  Report Type: Other
  Country: US (occurrence: None)
  Receive Date: 20211006
  Receipt Date: 20230329
  Transmission Date: 20230418
  Serious: Yes (Hospitalization, Disabling)
  Sender: FDA-Public Use
  Company Number: US-ROCHE-2924660

PATIENT
  Age: 31 Year
  Sex: Female
  Weight: 90.800 kg

DRUGS (3)
  1. OCREVUS [Suspect]
     Active Substance: OCRELIZUMAB
     Indication: Relapsing multiple sclerosis
     Route: 042
     Dates: start: 20181107
  2. OCREVUS [Suspect]
     Active Substance: OCRELIZUMAB
     Route: 042
  3. KEPPRA [Concomitant]
     Active Substance: LEVETIRACETAM
     Indication: Seizure
     Route: 048

REACTIONS (10)
  - Seizure [Recovered/Resolved]
  - Guillain-Barre syndrome [Unknown]
  - Gait disturbance [Not Recovered/Not Resolved]
  - COVID-19 [Recovered/Resolved]
  - Paralysis [Not Recovered/Not Resolved]
  - Urinary tract infection [Recovered/Resolved]
  - Hypoaesthesia [Not Recovered/Not Resolved]
  - Paralysis [Recovering/Resolving]
  - Amnesia [Not Recovered/Not Resolved]
  - Paralysis [Not Recovered/Not Resolved]

NARRATIVE: CASE EVENT DATE: 20201206
